FAERS Safety Report 16850208 (Version 5)
Quarter: 2023Q2

REPORT INFORMATION
  Report Type: Spontaneous
  Country: US (occurrence: US)
  Receive Date: 20190925
  Receipt Date: 20230425
  Transmission Date: 20230722
  Serious: Yes (Hospitalization, Other)
  Sender: FDA-Public Use
  Company Number: US-GILEAD-2019-0429511

PATIENT
  Age: 51 Year
  Sex: Male
  Weight: 82.54 kg

DRUGS (65)
  1. VIREAD [Suspect]
     Active Substance: TENOFOVIR DISOPROXIL FUMARATE
     Indication: HIV infection
     Dosage: UNK
     Route: 048
     Dates: start: 2001, end: 2007
  2. VIREAD [Suspect]
     Active Substance: TENOFOVIR DISOPROXIL FUMARATE
     Dosage: UNK
     Route: 048
     Dates: start: 200207, end: 200802
  3. TRUVADA [Suspect]
     Active Substance: EMTRICITABINE\TENOFOVIR DISOPROXIL FUMARATE
     Indication: HIV infection
     Dosage: UNK
     Route: 048
     Dates: start: 2001, end: 2018
  4. TRUVADA [Suspect]
     Active Substance: EMTRICITABINE\TENOFOVIR DISOPROXIL FUMARATE
     Dosage: UNK
     Route: 048
     Dates: start: 200804, end: 20121113
  5. ATRIPLA [Suspect]
     Active Substance: EFAVIRENZ\EMTRICITABINE\TENOFOVIR DISOPROXIL FUMARATE
     Indication: HIV infection
     Dosage: UNK
     Route: 048
     Dates: start: 2001, end: 2018
  6. ATRIPLA [Suspect]
     Active Substance: EFAVIRENZ\EMTRICITABINE\TENOFOVIR DISOPROXIL FUMARATE
     Dosage: UNK
     Route: 048
     Dates: start: 200802, end: 200804
  7. STRIBILD [Suspect]
     Active Substance: COBICISTAT\ELVITEGRAVIR\EMTRICITABINE\TENOFOVIR DISOPROXIL FUMARATE
     Indication: HIV infection
     Dosage: UNK
     Route: 048
     Dates: start: 2001, end: 2018
  8. STRIBILD [Suspect]
     Active Substance: COBICISTAT\ELVITEGRAVIR\EMTRICITABINE\TENOFOVIR DISOPROXIL FUMARATE
     Dosage: UNK
     Route: 048
     Dates: start: 201211, end: 2015
  9. OLANZAPINE [Concomitant]
     Active Substance: OLANZAPINE
  10. AMLODIPINE [Concomitant]
     Active Substance: AMLODIPINE BESYLATE
  11. RISPERIDONE [Concomitant]
     Active Substance: RISPERIDONE
  12. HALOPERIDOL [Concomitant]
     Active Substance: HALOPERIDOL
  13. BENZTROPINE [Concomitant]
     Active Substance: BENZTROPINE
  14. FLUOXETINE [Concomitant]
     Active Substance: FLUOXETINE HYDROCHLORIDE
  15. DIVALPROEX SODIUM [Concomitant]
     Active Substance: DIVALPROEX SODIUM
  16. TRAZODONE [Concomitant]
     Active Substance: TRAZODONE HYDROCHLORIDE
  17. ATORVASTATIN [Concomitant]
     Active Substance: ATORVASTATIN
  18. BISACODYL [Concomitant]
     Active Substance: BISACODYL
  19. GAVILYTE - C [Concomitant]
     Active Substance: POLYETHYLENE GLYCOL 3350\POTASSIUM CHLORIDE\SODIUM BICARBONATE\SODIUM CHLORIDE\SODIUM SULFATE
  20. IRBESARTAN [Concomitant]
     Active Substance: IRBESARTAN
  21. PERPHENAZINE [Concomitant]
     Active Substance: PERPHENAZINE
  22. METOPROLOL [Concomitant]
     Active Substance: METOPROLOL
  23. EPLERENONE [Concomitant]
     Active Substance: EPLERENONE
  24. HYDROXYZINE [Concomitant]
     Active Substance: HYDROXYZINE HYDROCHLORIDE
  25. SERTRALINE [Concomitant]
     Active Substance: SERTRALINE HYDROCHLORIDE
  26. DIAZEPAM [Concomitant]
     Active Substance: DIAZEPAM
  27. TAMSULOSIN [Concomitant]
     Active Substance: TAMSULOSIN
  28. DOXAZOSIN [Concomitant]
     Active Substance: DOXAZOSIN MESYLATE
  29. QUETIAPINE [Concomitant]
     Active Substance: QUETIAPINE
  30. ROSUVASTATIN [Concomitant]
     Active Substance: ROSUVASTATIN
  31. BIKTARVY [Concomitant]
     Active Substance: BICTEGRAVIR SODIUM\EMTRICITABINE\TENOFOVIR ALAFENAMIDE FUMARATE
  32. CIMDUO [Concomitant]
     Active Substance: LAMIVUDINE\TENOFOVIR DISOPROXIL FUMARATE
  33. GENVOYA [Concomitant]
     Active Substance: COBICISTAT\ELVITEGRAVIR\EMTRICITABINE\TENOFOVIR ALAFENAMIDE FUMARATE
  34. JULUCA [Concomitant]
     Active Substance: DOLUTEGRAVIR SODIUM\RILPIVIRINE HYDROCHLORIDE
  35. ASPIRIN [Concomitant]
     Active Substance: ASPIRIN
  36. CLONIDINE [Concomitant]
     Active Substance: CLONIDINE
  37. NIFEDIPINE [Concomitant]
     Active Substance: NIFEDIPINE
  38. CARVEDILOL [Concomitant]
     Active Substance: CARVEDILOL
  39. HYDRALAZINE [Concomitant]
     Active Substance: HYDRALAZINE HYDROCHLORIDE
  40. TORSEMIDE [Concomitant]
     Active Substance: TORSEMIDE
  41. SODIUM BICARBONATE [Concomitant]
     Active Substance: SODIUM BICARBONATE
  42. BUSPIRONE [Concomitant]
     Active Substance: BUSPIRONE HYDROCHLORIDE
  43. LOSARTAN POTASSIUM [Concomitant]
     Active Substance: LOSARTAN POTASSIUM
  44. VITAMIN D3 [Concomitant]
     Active Substance: CHOLECALCIFEROL
  45. FERROUS SULFATE [Concomitant]
     Active Substance: FERROUS SULFATE
  46. ATORVASTATIN CALCIUM [Concomitant]
     Active Substance: ATORVASTATIN CALCIUM
  47. AMMONIUM LACTATE [Concomitant]
     Active Substance: AMMONIUM LACTATE
  48. COMBIVIR [Concomitant]
     Active Substance: LAMIVUDINE\ZIDOVUDINE
  49. ERGOCALCIFEROL [Concomitant]
     Active Substance: ERGOCALCIFEROL
  50. FERROUS FUMARATE\FOLIC ACID\VITAMIN B COMPLEX [Concomitant]
     Active Substance: FERROUS FUMARATE\FOLIC ACID\VITAMIN B COMPLEX
  51. ISENTRESS [Concomitant]
     Active Substance: RALTEGRAVIR POTASSIUM
  52. KALETRA [Concomitant]
     Active Substance: LOPINAVIR\RITONAVIR
  53. LORAZEPAM [Concomitant]
     Active Substance: LORAZEPAM
  54. NORVIR [Concomitant]
     Active Substance: RITONAVIR
  55. SEROQUEL [Concomitant]
     Active Substance: QUETIAPINE FUMARATE
  56. TRIZIVIR [Concomitant]
     Active Substance: ABACAVIR SULFATE\LAMIVUDINE\ZIDOVUDINE
  57. ZERIT [Concomitant]
     Active Substance: STAVUDINE
  58. ZOLOFT [Concomitant]
     Active Substance: SERTRALINE HYDROCHLORIDE
  59. BENZTROPINE [Concomitant]
     Active Substance: BENZTROPINE
  60. DIVALPROEX SODIUM [Concomitant]
     Active Substance: DIVALPROEX SODIUM
  61. ZIPRASIDONE [Concomitant]
     Active Substance: ZIPRASIDONE
  62. PAROXETINE [Concomitant]
     Active Substance: PAROXETINE
  63. GAVILYTE G [Concomitant]
     Active Substance: POLYETHYLENE GLYCOL 3350\POTASSIUM CHLORIDE\SODIUM BICARBONATE\SODIUM CHLORIDE\SODIUM SULFATE
  64. LITHIUM CARBONATE [Concomitant]
     Active Substance: LITHIUM CARBONATE
  65. CRIXIVAN [Concomitant]
     Active Substance: INDINAVIR SULFATE

REACTIONS (13)
  - Renal artery stenosis [Unknown]
  - Renal tubular necrosis [Unknown]
  - End stage renal disease [Not Recovered/Not Resolved]
  - Renal injury [Unknown]
  - Quality of life decreased [Unknown]
  - Decreased activity [Unknown]
  - Pain [Not Recovered/Not Resolved]
  - Emotional distress [Not Recovered/Not Resolved]
  - Anxiety [Not Recovered/Not Resolved]
  - Anhedonia [Not Recovered/Not Resolved]
  - Fatigue [Not Recovered/Not Resolved]
  - Depression [Not Recovered/Not Resolved]
  - Pain in extremity [Not Recovered/Not Resolved]

NARRATIVE: CASE EVENT DATE: 20160101
